FAERS Safety Report 4389117-8 (Version None)
Quarter: 2004Q2

REPORT INFORMATION
  Report Type: 
  Country: None (occurrence: None)
  Receive Date: 20040624
  Receipt Date: 20040608
  Transmission Date: 20050107
  Serious: Yes (Other)
  Sender: FDA-Public Use
  Company Number: 24180(0)

PATIENT
  Age: 62 Year
  Sex: Female

DRUGS (1)
  1. ALDARA [Suspect]
     Indication: LIP DISORDER
     Dosage: 0.1 SACHET, 4 TOTAL), TOPICAL
     Route: 061
     Dates: start: 20040601, end: 20040604

REACTIONS (13)
  - APPLICATION SITE OEDEMA [None]
  - APPLICATION SITE PAIN [None]
  - APPLICATION SITE ULCER [None]
  - APPLICATION SITE VESICLES [None]
  - CHILLS [None]
  - DYSPHAGIA [None]
  - FACE OEDEMA [None]
  - INFLUENZA LIKE ILLNESS [None]
  - LIP ULCERATION [None]
  - MOUTH ULCERATION [None]
  - MYALGIA [None]
  - NAUSEA [None]
  - TONGUE OEDEMA [None]
